FAERS Safety Report 9844333 (Version 1)
Quarter: 2013Q4

REPORT INFORMATION
  Report Type: Spontaneous
  Country: DE (occurrence: None)
  Receive Date: 20131226
  Receipt Date: 20131226
  Transmission Date: 20140711
  Serious: Yes (Other)
  Sender: FDA-Public Use
  Company Number: GAM-442-13-DE

PATIENT
  Age: 80 Year
  Sex: Male

DRUGS (1)
  1. OCTAGAM [Suspect]
     Indication: IMMUNODEFICIENCY
     Route: 042
     Dates: start: 20131212, end: 20131223

REACTIONS (6)
  - Dyspnoea [None]
  - Stridor [None]
  - Chills [None]
  - Cyanosis [None]
  - Body temperature increased [None]
  - Infusion related reaction [None]
